FAERS Safety Report 6157927-2 (Version None)
Quarter: 2009Q2

REPORT INFORMATION
  Report Type: 
  Country: None (occurrence: None)
  Receive Date: 20090417
  Receipt Date: 20090414
  Transmission Date: 20091009
  Serious: Yes (Death, Life-Threatening)
  Sender: FDA-Public Use
  Company Number: DE-JNJFOC-20090206289

PATIENT
  Age: 94 Year
  Sex: Female
  Weight: 63.7 kg

DRUGS (14)
  1. HALDOL [Suspect]
     Route: 048
  2. HALDOL [Suspect]
     Route: 048
  3. HALDOL [Suspect]
     Indication: DRUG USE FOR UNKNOWN INDICATION
     Route: 048
  4. DIPIPERON [Suspect]
     Indication: DRUG USE FOR UNKNOWN INDICATION
     Route: 048
  5. DIAZEPAM [Suspect]
     Indication: DRUG USE FOR UNKNOWN INDICATION
     Route: 048
  6. BELOC MITE [Interacting]
     Indication: DRUG USE FOR UNKNOWN INDICATION
     Route: 048
  7. LEVOTHYROXINE SODIUM [Concomitant]
     Route: 048
  8. PANTOZOL [Concomitant]
     Route: 048
  9. ENALAPRIL MALEATE [Concomitant]
     Route: 048
  10. ASPIRIN [Concomitant]
     Route: 048
  11. NULYTELY [Concomitant]
     Route: 048
  12. NOVALGIN [Concomitant]
     Route: 048
  13. THEOPHYLLINE [Concomitant]
     Route: 048
  14. LISINOPRIL [Concomitant]
     Route: 065

REACTIONS (5)
  - APNOEA [None]
  - CARDIAC ARREST [None]
  - CARDIAC FAILURE [None]
  - DRUG INTERACTION [None]
  - SYNCOPE [None]
